FAERS Safety Report 7122323-8 (Version None)
Quarter: 2010Q4

REPORT INFORMATION
  Report Type: 
  Country: None (occurrence: None)
  Receive Date: 20101124
  Receipt Date: 20101119
  Transmission Date: 20110411
  Serious: Yes (Other)
  Sender: FDA-Public Use
  Company Number: JP-PFIZER INC-2010147573

PATIENT
  Age: 65 Year
  Sex: Male

DRUGS (2)
  1. CHAMPIX [Suspect]
     Dosage: 2MG DAILY
     Route: 048
     Dates: start: 20100801
  2. PRAMIPEXOLE HYDROCHLORIDE MONOHYDRATE [Concomitant]

REACTIONS (1)
  - PARKINSON'S DISEASE [None]
